FAERS Safety Report 6096616-X (Version None)
Quarter: 2009Q1

REPORT INFORMATION
  Report Type: 
  Country: None (occurrence: None)
  Receive Date: 20090227
  Receipt Date: 20090223
  Transmission Date: 20090719
  Serious: No
  Sender: FDA-Public Use
  Company Number: US-SOLVAY-00209001019

PATIENT
  Age: 54 Year
  Sex: Female

DRUGS (1)
  1. ANDROGEL [Suspect]
     Indication: ACCIDENTAL EXPOSURE
     Dosage: DAILY DOSE:  UNKNOWN
     Route: 062

REACTIONS (3)
  - BLOOD TESTOSTERONE INCREASED [None]
  - HIRSUTISM [None]
  - MUSCULAR WEAKNESS [None]
